FAERS Safety Report 15965705 (Version 5)
Quarter: 2019Q1

REPORT INFORMATION
  Report Type: Report from Study
  Country: US (occurrence: US)
  Receive Date: 20190215
  Receipt Date: 20190319
  Transmission Date: 20190418
  Serious: Yes (Hospitalization, Other)
  Sender: FDA-Public Use
  Company Number: US-ROCHE-2253551

PATIENT
  Age: 74 Year
  Sex: Male
  Weight: 78.22 kg

DRUGS (41)
  1. SIMETHICONE (DIMETHICONE) [Concomitant]
     Active Substance: DIMETHICONE
     Dosage: PRN, ONGOING: UNKNOWN
     Route: 065
  2. TESALON [Concomitant]
     Active Substance: BENZONATATE
     Indication: COUGH
     Route: 048
  3. METRONIDAZOLE. [Concomitant]
     Active Substance: METRONIDAZOLE
     Indication: GASTRIC INFECTION
     Route: 048
     Dates: start: 20190131
  4. ROYAL JELLY [Concomitant]
     Active Substance: ROYAL JELLY
     Route: 065
  5. ESBRIET [Suspect]
     Active Substance: PIRFENIDONE
     Indication: IDIOPATHIC PULMONARY FIBROSIS
     Dosage: PILL
     Route: 048
     Dates: start: 20190104
  6. TAMSULOSIN HCL [Concomitant]
     Active Substance: TAMSULOSIN HYDROCHLORIDE
     Indication: PRODUCT USED FOR UNKNOWN INDICATION
     Dosage: ONGOING: UNKNOWN
     Route: 065
  7. CYCLOBENZAPRINE. [Concomitant]
     Active Substance: CYCLOBENZAPRINE
     Route: 048
     Dates: start: 20190118
  8. FLONASE [Concomitant]
     Active Substance: FLUTICASONE PROPIONATE
     Indication: SINUSITIS
     Route: 045
  9. LEVOTHYROXINE SODIUM. [Concomitant]
     Active Substance: LEVOTHYROXINE SODIUM
  10. SUMATRIPTAN SUCCINATE. [Concomitant]
     Active Substance: SUMATRIPTAN SUCCINATE
     Dosage: ONE AT ONSET OF HEADACHE. MAY REPEAT IN TWO HOURS
     Route: 048
  11. SOTALOL HCL [Concomitant]
     Active Substance: SOTALOL
     Indication: HYPERTENSION
     Dosage: ONGOING: UNKNOWN
     Route: 065
  12. SIMETHICONE (DIMETHICONE) [Concomitant]
     Active Substance: DIMETHICONE
     Indication: FLATULENCE
     Dosage: ONGOING:YES
     Route: 048
     Dates: start: 20190103
  13. FLONASE [Concomitant]
     Active Substance: FLUTICASONE PROPIONATE
     Dosage: TWO SQUIRTS IN EACH NOSTRIL TWICE A DAY
     Route: 045
  14. ESBRIET [Suspect]
     Active Substance: PIRFENIDONE
     Dosage: PILLS
     Route: 048
     Dates: start: 20190201
  15. ESBRIET [Suspect]
     Active Substance: PIRFENIDONE
     Dosage: ONGOING: YES
     Route: 048
  16. SUMATRIPTAN SUCCINATE. [Concomitant]
     Active Substance: SUMATRIPTAN SUCCINATE
     Indication: HEADACHE
     Dosage: ONGOING: YES
     Route: 048
  17. SERTRALINE HCL [Concomitant]
     Active Substance: SERTRALINE HYDROCHLORIDE
     Indication: PRODUCT USED FOR UNKNOWN INDICATION
     Dosage: ONGOING: UNKNOWN
     Route: 065
  18. PROAIR HFA [Concomitant]
     Active Substance: ALBUTEROL SULFATE
     Indication: PULMONARY FIBROSIS
     Dosage: RESPIRATORY (INHALATION)?ONGOING: YES
     Route: 055
  19. ZOLOFT [Concomitant]
     Active Substance: SERTRALINE HYDROCHLORIDE
     Indication: DEPRESSION
     Route: 048
  20. DICYCLOMINE [Concomitant]
     Active Substance: DICYCLOMINE HYDROCHLORIDE
     Route: 065
  21. DICYCLOMINE [Concomitant]
     Active Substance: DICYCLOMINE HYDROCHLORIDE
     Route: 065
  22. LOSARTAN POTASSIUM. [Concomitant]
     Active Substance: LOSARTAN POTASSIUM
     Indication: BLOOD PRESSURE MEASUREMENT
     Route: 065
  23. BENZONATATE. [Concomitant]
     Active Substance: BENZONATATE
     Indication: COUGH
     Dosage: UP TO THREE TIMES A DAY AS NEEDED
     Route: 065
  24. ACETAMINOPHEN. [Concomitant]
     Active Substance: ACETAMINOPHEN
  25. ESBRIET [Suspect]
     Active Substance: PIRFENIDONE
     Dosage: PILLS
     Route: 048
  26. SOTALOL HCL [Concomitant]
     Active Substance: SOTALOL
     Indication: HEART RATE IRREGULAR
     Dosage: ONE HALF TABLET DAILY
     Route: 048
  27. CYCLOBENZAPRINE. [Concomitant]
     Active Substance: CYCLOBENZAPRINE
     Route: 065
     Dates: start: 20190202
  28. METOPROLOL SUCCINATE. [Concomitant]
     Active Substance: METOPROLOL SUCCINATE
     Route: 065
  29. MIRALAX [Concomitant]
     Active Substance: POLYETHYLENE GLYCOL 3350
     Route: 065
     Dates: start: 20190220
  30. ESBRIET [Suspect]
     Active Substance: PIRFENIDONE
     Dosage: PILL
     Route: 048
     Dates: start: 20190128
  31. FAMOTIDINE. [Concomitant]
     Active Substance: FAMOTIDINE
     Dosage: FOR 30 DAYS, ONGOING: YES
     Route: 048
  32. FLOMAX [Concomitant]
     Active Substance: TAMSULOSIN HYDROCHLORIDE
     Indication: PROSTATOMEGALY
     Route: 065
     Dates: start: 2016
  33. DEXILANT [Concomitant]
     Active Substance: DEXLANSOPRAZOLE
     Route: 065
  34. ESBRIET [Suspect]
     Active Substance: PIRFENIDONE
     Dosage: MAINT, ONGOING: UNKNOWN
     Route: 048
     Dates: start: 20190110
  35. SYNTHROID [Concomitant]
     Active Substance: LEVOTHYROXINE SODIUM
     Route: 048
  36. CETIRIZINE [Concomitant]
     Active Substance: CETIRIZINE HYDROCHLORIDE
     Indication: HYPERSENSITIVITY
     Route: 065
  37. ESBRIET [Suspect]
     Active Substance: PIRFENIDONE
     Dosage: ONGOING :NO
     Route: 048
  38. SUMATRIPTAN SUCCINATE. [Concomitant]
     Active Substance: SUMATRIPTAN SUCCINATE
     Indication: MIGRAINE
     Dosage: ONGOING: UNKNOWN
     Route: 065
  39. PROAIR HFA [Concomitant]
     Active Substance: ALBUTEROL SULFATE
     Indication: ASTHMA
     Dosage: ONGOING: UNKNOWN
     Route: 065
  40. PROAIR HFA [Concomitant]
     Active Substance: ALBUTEROL SULFATE
     Indication: DYSPNOEA
     Dosage: TWO SQUIRTS IN MOUTH FOR REALLY BAD EMERGENCY ONGOING: YES
     Route: 055
  41. TESALON [Concomitant]
     Active Substance: BENZONATATE
     Dosage: UP TO THREE TIMES A DAY AS NEEDED
     Route: 065

REACTIONS (19)
  - Gastritis [Recovered/Resolved with Sequelae]
  - Gastrooesophageal reflux disease [Recovering/Resolving]
  - Asthenia [Not Recovered/Not Resolved]
  - Fatigue [Not Recovered/Not Resolved]
  - Weight decreased [Not Recovered/Not Resolved]
  - Dyspepsia [Unknown]
  - Dyspnoea [Not Recovered/Not Resolved]
  - Condition aggravated [Recovering/Resolving]
  - Arthralgia [Unknown]
  - Bone pain [Unknown]
  - Urine output increased [Unknown]
  - Diarrhoea [Recovered/Resolved]
  - Barrett^s oesophagus [Not Recovered/Not Resolved]
  - Flatulence [Not Recovered/Not Resolved]
  - Abdominal pain upper [Recovered/Resolved with Sequelae]
  - Abdominal pain upper [Unknown]
  - Confusional state [Not Recovered/Not Resolved]
  - Pain [Recovering/Resolving]
  - Abdominal discomfort [Unknown]

NARRATIVE: CASE EVENT DATE: 20190107
